FAERS Safety Report 13418656 (Version 4)
Quarter: 2017Q3

REPORT INFORMATION
  Report Type: Spontaneous
  Country: PL (occurrence: PL)
  Receive Date: 20170406
  Receipt Date: 20170816
  Transmission Date: 20171127
  Serious: Yes (Life-Threatening, Hospitalization, Other)
  Sender: FDA-Public Use
  Company Number: PL-TEVA-757360ISR

PATIENT
  Age: 55 Year
  Sex: Female
  Weight: 52 kg

DRUGS (1)
  1. ZAMUR 500 [Suspect]
     Active Substance: CEFUROXIME AXETIL
     Indication: STOMATITIS
     Dosage: 1000 MILLIGRAM DAILY;
     Route: 048
     Dates: start: 20160527, end: 20160527

REACTIONS (15)
  - Affect lability [Unknown]
  - General physical health deterioration [Unknown]
  - Urticaria [Recovered/Resolved with Sequelae]
  - Refusal of treatment by patient [Unknown]
  - Loss of consciousness [Recovered/Resolved with Sequelae]
  - Anaphylactic shock [Recovered/Resolved with Sequelae]
  - Heart rate decreased [Recovered/Resolved with Sequelae]
  - Circulatory collapse [Recovered/Resolved with Sequelae]
  - Panic attack [Unknown]
  - Impaired work ability [Unknown]
  - Respiratory failure [Recovered/Resolved with Sequelae]
  - Respiratory rate decreased [Recovered/Resolved with Sequelae]
  - Malaise [Unknown]
  - Discomfort [Unknown]
  - Loss of personal independence in daily activities [Unknown]

NARRATIVE: CASE EVENT DATE: 20160527
